FAERS Safety Report 14966790 (Version 1)
Quarter: 2018Q2

REPORT INFORMATION
  Report Type: Report from Study
  Country: RU (occurrence: RU)
  Receive Date: 20180604
  Receipt Date: 20180604
  Transmission Date: 20180711
  Serious: No
  Sender: FDA-Public Use
  Company Number: RU-CHEPLA-1925021

PATIENT
  Age: 79 Year
  Sex: Female
  Weight: 75 kg

DRUGS (1)
  1. XENICAL [Suspect]
     Active Substance: ORLISTAT
     Indication: OVERWEIGHT
     Dosage: IN APR/2017, THE PATIENT STARTED THE NEW BATCH OF ORLISTAT (M2185M1P04; EXP 31/MAY/2018)
     Route: 048
     Dates: start: 2014

REACTIONS (3)
  - Drug ineffective [Unknown]
  - Steatorrhoea [Recovered/Resolved]
  - Suspected counterfeit product [Unknown]

NARRATIVE: CASE EVENT DATE: 2014
